FAERS Safety Report 18866528 (Version 1)
Quarter: 2021Q1

REPORT INFORMATION
  Report Type: Spontaneous
  Country: SG (occurrence: SG)
  Receive Date: 20210209
  Receipt Date: 20210209
  Transmission Date: 20210420
  Serious: Yes (Hospitalization, Other)
  Sender: FDA-Public Use
  Company Number: SG-LEADINGPHARMA-SG-2021LEALIT00032

PATIENT
  Age: 9 Month
  Sex: Female

DRUGS (2)
  1. MILRINONE [Suspect]
     Active Substance: MILRINONE
     Indication: LEFT VENTRICULAR FAILURE
     Dosage: 0.5 TO 0.7MCG/ KG/MIN
     Route: 065
  2. FUROSEMIDE TABLETS USP [Suspect]
     Active Substance: FUROSEMIDE
     Indication: LEFT VENTRICULAR FAILURE
     Route: 042

REACTIONS (1)
  - Drug ineffective [Unknown]
